FAERS Safety Report 5025326-2 (Version None)
Quarter: 2006Q2

REPORT INFORMATION
  Report Type: 
  Country: None (occurrence: None)
  Receive Date: 20060607
  Receipt Date: 20060530
  Transmission Date: 20061013
  Serious: Yes (Other)
  Sender: FDA-Public Use
  Company Number: 200613658BWH

PATIENT

DRUGS (2)
  1. AVELOX [Suspect]
  2. AMIODARONE HCL [Suspect]

REACTIONS (1)
  - DRUG TOXICITY [None]
